FAERS Safety Report 6462495-1 (Version None)
Quarter: 2009Q4

REPORT INFORMATION
  Report Type: 
  Country: None (occurrence: None)
  Receive Date: 20091130
  Receipt Date: 20091117
  Transmission Date: 20100525
  Serious: Yes (Hospitalization, Other)
  Sender: FDA-Public Use
  Company Number: US-ELI_LILLY_AND_COMPANY-US200911004693

PATIENT
  Sex: Female

DRUGS (6)
  1. FORTEO [Suspect]
     Dosage: 20 UG, DAILY (1/D)
     Dates: start: 20090401
  2. BACLOFEN [Concomitant]
  3. AMANTADINE [Concomitant]
  4. ZANAFLEX [Concomitant]
  5. NITROFURANTOIN [Concomitant]
  6. OXYBUTYNIN [Concomitant]

REACTIONS (2)
  - OSTEOMYELITIS [None]
  - SKIN ULCER [None]
